FAERS Safety Report 8344531-0 (Version None)
Quarter: 2012Q2

REPORT INFORMATION
  Report Type: 
  Country: None (occurrence: None)
  Receive Date: 20120508
  Receipt Date: 20120430
  Transmission Date: 20120825
  Serious: Yes (Death, Hospitalization)
  Sender: FDA-Public Use
  Company Number: CA-JNJFOC-20120501084

PATIENT
  Sex: Female
  Weight: 68.95 kg

DRUGS (7)
  1. PLAQUENIL [Concomitant]
     Indication: RHEUMATOID ARTHRITIS
     Dosage: FREQUENCY: D.I.E
     Route: 048
     Dates: start: 20100801
  2. REMICADE [Suspect]
     Indication: RHEUMATOID ARTHRITIS
     Route: 042
     Dates: start: 20101215, end: 20110308
  3. FOLIC ACID [Concomitant]
     Indication: URINARY TRACT INFECTION
     Route: 048
     Dates: start: 20100701
  4. METHOTREXATE [Concomitant]
     Indication: RHEUMATOID ARTHRITIS
     Route: 048
     Dates: start: 20100701
  5. COZAAR [Concomitant]
     Indication: HYPERTENSION
     Dosage: START DATE: BEFORE 2009 FREQUENCY: D I E
     Route: 048
  6. DICLOFENAC [Concomitant]
     Indication: RHEUMATOID ARTHRITIS
     Dosage: FREQUENCY: D.I.E
     Route: 048
     Dates: start: 20100701
  7. PRAVASTATIN [Concomitant]
     Indication: BLOOD CHOLESTEROL
     Dosage: FREQUENCY: D.I.E  START DATE: BEFORE 2001
     Route: 048

REACTIONS (1)
  - RESPIRATORY FAILURE [None]
